FAERS Safety Report 16628073 (Version 2)
Quarter: 2019Q3

REPORT INFORMATION
  Report Type: Report from Study
  Country: US (occurrence: US)
  Receive Date: 20190724
  Receipt Date: 20190806
  Transmission Date: 20191004
  Serious: Yes (Death)
  Sender: FDA-Public Use
  Company Number: US-TEVA-2019-US-1081409

PATIENT

DRUGS (3)
  1. WARFARIN [Suspect]
     Active Substance: WARFARIN
     Route: 065
  2. CLOPIDOGREL [Suspect]
     Active Substance: CLOPIDOGREL BISULFATE
     Route: 065
  3. DIPYRIDAMOLE. [Suspect]
     Active Substance: DIPYRIDAMOLE
     Route: 065

REACTIONS (1)
  - Subdural haematoma [Fatal]
